FAERS Safety Report 4951040-5 (Version None)
Quarter: 2006Q1

REPORT INFORMATION
  Report Type: 
  Country: None (occurrence: None)
  Receive Date: 20060322
  Receipt Date: 20050906
  Transmission Date: 20060701
  Serious: Yes (Death, Hospitalization)
  Sender: FDA-Public Use
  Company Number: US-MERCK-0509USA00626

PATIENT
  Age: 81 Year
  Sex: Female

DRUGS (12)
  1. SYNTHROID [Concomitant]
     Route: 048
  2. CLONIDINE [Concomitant]
     Route: 065
  3. LANOXIN [Concomitant]
     Route: 065
     Dates: end: 20050401
  4. ISORDIL [Concomitant]
     Route: 065
  5. SEREVENT DISK [Concomitant]
     Route: 065
  6. PROVENTIL [Concomitant]
     Route: 065
  7. ASPIRIN [Concomitant]
     Route: 048
  8. SINGULAIR [Suspect]
     Indication: ASTHMA
     Route: 048
     Dates: start: 20020101, end: 20050401
  9. CALAN [Concomitant]
     Route: 065
  10. K-DUR 10 [Concomitant]
     Route: 048
  11. PRAVACHOL [Concomitant]
     Route: 048
  12. LASIX [Concomitant]
     Route: 065

REACTIONS (21)
  - ALLERGIC GRANULOMATOUS ANGIITIS [None]
  - AORTIC VALVE SCLEROSIS [None]
  - ASTHENIA [None]
  - ATELECTASIS [None]
  - ATRIAL FIBRILLATION [None]
  - BRADYCARDIA [None]
  - CELLULITIS [None]
  - DEATH [None]
  - HAEMATOCRIT DECREASED [None]
  - HAEMOGLOBIN DECREASED [None]
  - HYPOAESTHESIA [None]
  - KLEBSIELLA INFECTION [None]
  - MITRAL VALVE INCOMPETENCE [None]
  - NASOPHARYNGITIS [None]
  - NEUROPATHY [None]
  - OEDEMA [None]
  - OEDEMA PERIPHERAL [None]
  - PAIN IN EXTREMITY [None]
  - PERONEAL NERVE PALSY [None]
  - RHEUMATOID FACTOR INCREASED [None]
  - WEIGHT INCREASED [None]
